FAERS Safety Report 4835250-3 (Version None)
Quarter: 2005Q4

REPORT INFORMATION
  Report Type: 
  Country: None (occurrence: None)
  Receive Date: 20051122
  Receipt Date: 20051117
  Transmission Date: 20060501
  Serious: Yes (Hospitalization)
  Sender: FDA-Public Use
  Company Number: DE-MERCK-0511DEU00120

PATIENT
  Age: 66 Year
  Sex: Female

DRUGS (4)
  1. VYTORIN [Suspect]
     Indication: HYPERCHOLESTEROLAEMIA
     Route: 048
     Dates: start: 20051110, end: 20051110
  2. OPIPRAMOL HYDROCHLORIDE [Concomitant]
     Indication: DEPRESSION
     Route: 048
     Dates: start: 19990101
  3. DICLOFENAC SODIUM AND MISOPROSTOL [Concomitant]
     Route: 048
  4. MISTLETOE [Concomitant]
     Indication: BREAST CANCER
     Route: 051

REACTIONS (1)
  - NEUROLOGICAL SYMPTOM [None]
